FAERS Safety Report 13373949 (Version 5)
Quarter: 2017Q4

REPORT INFORMATION
  Report Type: Spontaneous
  Country: US (occurrence: US)
  Receive Date: 20170327
  Receipt Date: 20171121
  Transmission Date: 20180320
  Serious: Yes (Other)
  Sender: FDA-Public Use
  Company Number: US-PFIZER INC-2017130424

PATIENT
  Age: 69 Year
  Sex: Female
  Weight: 58.97 kg

DRUGS (10)
  1. IBRANCE [Suspect]
     Active Substance: PALBOCICLIB
     Indication: BREAST CANCER METASTATIC
     Dosage: 125 MG, CYCLIC (ONCE A DAY FOR 21 DAYS, OFF FOR 7 DAYS)
     Dates: start: 20160422
  2. LETROZOLE. [Suspect]
     Active Substance: LETROZOLE
     Indication: BREAST CANCER METASTATIC
     Dosage: 2.5 MG, 1X/DAY CONTINUOUSLY
     Dates: start: 20160422
  3. CITRACAL [Concomitant]
     Active Substance: CALCIUM CITRATE
     Dosage: 3600 IU, DAILY (THE WEEK SHE GETS THE XGEVA SHOT)
  4. CITRACAL [Concomitant]
     Active Substance: CALCIUM CITRATE
     Dosage: 1800 IU, DAILY (3 WEEKS OUT OF THE MONTH)
     Dates: start: 20160526
  5. IBRANCE [Suspect]
     Active Substance: PALBOCICLIB
     Dosage: 100 MG, 1X/DAY (21 DAYS)
     Dates: start: 20160606
  6. LETROZOLE. [Suspect]
     Active Substance: LETROZOLE
     Dosage: UNK
     Dates: start: 20170111, end: 20170413
  7. XGEVA [Concomitant]
     Active Substance: DENOSUMAB
     Indication: PROPHYLAXIS
     Dosage: 1 DF, MONTHLY (SHOT INTO HER ARM ONCE A MONTH, EVERY 4 WEEKS)
     Dates: start: 20160428
  8. IBRANCE [Suspect]
     Active Substance: PALBOCICLIB
     Dosage: UNK
     Dates: start: 20170111, end: 20170413
  9. XGEVA [Concomitant]
     Active Substance: DENOSUMAB
     Indication: BREAST CANCER METASTATIC
  10. VITAMIN D3 [Concomitant]
     Active Substance: CHOLECALCIFEROL
     Dosage: 5000 IU, 2X/WEEK (DOSE VARIES ACCORDING TO WHAT HER COUNTS ARE)
     Dates: start: 20160526

REACTIONS (7)
  - Blood bilirubin increased [Unknown]
  - Paraesthesia [Not Recovered/Not Resolved]
  - Dizziness [Not Recovered/Not Resolved]
  - Neutropenia [Not Recovered/Not Resolved]
  - White blood cell count decreased [Not Recovered/Not Resolved]
  - Neoplasm progression [Not Recovered/Not Resolved]
  - Pain [Not Recovered/Not Resolved]

NARRATIVE: CASE EVENT DATE: 20160428
